FAERS Safety Report 5531706-9 (Version None)
Quarter: 2007Q4

REPORT INFORMATION
  Report Type: 
  Country: None (occurrence: None)
  Receive Date: 20071128
  Receipt Date: 20071120
  Transmission Date: 20080405
  Serious: Yes (Other)
  Sender: FDA-Public Use
  Company Number: E2090-00348-SPO-JP

PATIENT
  Age: 61 Year
  Sex: Male

DRUGS (8)
  1. ZONISAMIDE [Suspect]
     Indication: CONVULSION
     Dosage: 200 MG, 1 IN 1 D, ORAL ; 400 MG, 1 IN 1 D, ORAL
     Route: 048
     Dates: start: 20071013, end: 20071019
  2. ZONISAMIDE [Suspect]
     Indication: HEAD INJURY
     Dosage: 200 MG, 1 IN 1 D, ORAL ; 400 MG, 1 IN 1 D, ORAL
     Route: 048
     Dates: start: 20071013, end: 20071019
  3. ZONISAMIDE [Suspect]
     Indication: CONVULSION
     Dosage: 200 MG, 1 IN 1 D, ORAL ; 400 MG, 1 IN 1 D, ORAL
     Route: 048
     Dates: start: 20071020, end: 20071104
  4. ZONISAMIDE [Suspect]
     Indication: HEAD INJURY
     Dosage: 200 MG, 1 IN 1 D, ORAL ; 400 MG, 1 IN 1 D, ORAL
     Route: 048
     Dates: start: 20071020, end: 20071104
  5. VANCOMYCIN HYDROCHLORIDE [Concomitant]
  6. CIPROFLAXACIN [Concomitant]
  7. PERDIPINE LA(NICARDIPINE HYDROCHLORIDE) [Concomitant]
  8. ENALAPRIL MALEATE [Concomitant]

REACTIONS (3)
  - ERYTHEMA [None]
  - GRANULOCYTOPENIA [None]
  - METABOLIC ACIDOSIS [None]
